FAERS Safety Report 5163346-8 (Version None)
Quarter: 2006Q4

REPORT INFORMATION
  Report Type: 
  Country: None (occurrence: None)
  Receive Date: 20061204
  Receipt Date: 20061122
  Transmission Date: 20070319
  Serious: Yes (Life-Threatening, Hospitalization)
  Sender: FDA-Public Use
  Company Number: US-JNJFOC-20060904346

PATIENT
  Sex: Male
  Weight: 81.19 kg

DRUGS (13)
  1. REMICADE [Suspect]
     Route: 042
  2. REMICADE [Suspect]
     Route: 042
  3. REMICADE [Suspect]
     Route: 042
  4. REMICADE [Suspect]
     Route: 042
  5. REMICADE [Suspect]
     Route: 042
  6. REMICADE [Suspect]
     Indication: CROHN'S DISEASE
     Route: 042
  7. PRILOSEC [Concomitant]
  8. PROZAC [Concomitant]
  9. QUESTRAN [Concomitant]
  10. DAYPRO [Concomitant]
  11. VITAMIN CAP [Concomitant]
  12. ASPIRIN [Concomitant]
  13. METAMUCIL [Concomitant]

REACTIONS (9)
  - COLLAPSE OF LUNG [None]
  - IMMUNE SYSTEM DISORDER [None]
  - LUPUS-LIKE SYNDROME [None]
  - OESOPHAGEAL CANDIDIASIS [None]
  - OESOPHAGEAL ULCER [None]
  - OESOPHAGITIS [None]
  - PLEUROPERICARDITIS [None]
  - PNEUMONIA PRIMARY ATYPICAL [None]
  - PNEUMONITIS [None]
